FAERS Safety Report 6817385-9 (Version None)
Quarter: 2010Q3

REPORT INFORMATION
  Report Type: 
  Country: None (occurrence: None)
  Receive Date: 20100706
  Receipt Date: 20100622
  Transmission Date: 20110219
  Serious: Yes (Other)
  Sender: FDA-Public Use
  Company Number: US-JNJFOC-20100607950

PATIENT
  Sex: Male

DRUGS (2)
  1. CHILDREN'S MOTRIN [Suspect]
     Indication: PYREXIA
     Route: 048
  2. CHILDREN'S MOTRIN [Suspect]
     Indication: EAR INFECTION
     Route: 048

REACTIONS (5)
  - ABASIA [None]
  - ARTHRALGIA [None]
  - ERYTHEMA MULTIFORME [None]
  - PRODUCT QUALITY ISSUE [None]
  - URTICARIA [None]
